FAERS Safety Report 14837766 (Version 1)
Quarter: 2018Q2

REPORT INFORMATION
  Report Type: Spontaneous
  Country: US (occurrence: US)
  Receive Date: 20180502
  Receipt Date: 20180502
  Transmission Date: 20180711
  Serious: Yes (Other)
  Sender: FDA-Public Use
  Company Number: US-BAYER-2018-083669

PATIENT
  Sex: Male

DRUGS (1)
  1. AFRIN ORIGINAL [Suspect]
     Active Substance: OXYMETAZOLINE HYDROCHLORIDE
     Dosage: 1 DF, UNK 1 SPRAY IN EACH NOSTRIL
     Route: 065

REACTIONS (5)
  - Nasal obstruction [Unknown]
  - Product container issue [None]
  - Nasal congestion [Unknown]
  - Underdose [Unknown]
  - Near drowning [Unknown]
